FAERS Safety Report 7250994-4 (Version None)
Quarter: 2011Q1

REPORT INFORMATION
  Report Type: 
  Country: None (occurrence: None)
  Receive Date: 20110128
  Receipt Date: 20110120
  Transmission Date: 20110831
  Serious: Yes (Hospitalization)
  Sender: FDA-Public Use
  Company Number: B0694945A

PATIENT
  Sex: Male

DRUGS (9)
  1. PRIMPERAN TAB [Suspect]
     Route: 048
     Dates: start: 20101016, end: 20101114
  2. ZAVEDOS [Concomitant]
     Dosage: 20MG PER DAY
     Dates: start: 20101016, end: 20101018
  3. ROCEPHIN [Concomitant]
     Dates: start: 20101001, end: 20101001
  4. ZELITREX [Suspect]
     Route: 048
     Dates: start: 20101016, end: 20101126
  5. BACTRIM [Suspect]
     Route: 048
     Dates: start: 20101016, end: 20101114
  6. TOPALGIC ( FRANCE ) [Suspect]
     Route: 048
     Dates: start: 20101016, end: 20101114
  7. GENTAMICIN [Concomitant]
     Dates: start: 20101001, end: 20101001
  8. LEDERFOLINE [Suspect]
     Route: 048
     Dates: start: 20101016, end: 20101114
  9. CYTARABINE [Concomitant]
     Dosage: 1.2G TWICE PER DAY
     Dates: start: 20101016, end: 20101020

REACTIONS (12)
  - DRUG RASH WITH EOSINOPHILIA AND SYSTEMIC SYMPTOMS [None]
  - INFECTION [None]
  - CHILLS [None]
  - SKIN EXFOLIATION [None]
  - RASH MACULO-PAPULAR [None]
  - FACE OEDEMA [None]
  - EOSINOPHILIA [None]
  - PYREXIA [None]
  - CYTOLYTIC HEPATITIS [None]
  - RASH [None]
  - PRURITUS [None]
  - SEPSIS [None]
